FAERS Safety Report 7580709-1 (Version None)
Quarter: 2011Q2

REPORT INFORMATION
  Report Type: 
  Country: None (occurrence: None)
  Receive Date: 20110629
  Receipt Date: 20110617
  Transmission Date: 20111010
  Serious: Yes (Hospitalization)
  Sender: FDA-Public Use
  Company Number: US-JNJFOC-20100600660

PATIENT
  Sex: Male
  Weight: 40.7 kg

DRUGS (2)
  1. INFLIXIMAB [Suspect]
     Indication: CROHN'S DISEASE
     Route: 042
     Dates: start: 20040816, end: 20050613
  2. HUMIRA [Concomitant]
     Indication: CROHN'S DISEASE
     Dates: start: 20070809

REACTIONS (1)
  - SMALL INTESTINAL OBSTRUCTION [None]
